FAERS Safety Report 8777196 (Version 2)
Quarter: 2012Q4

REPORT INFORMATION
  Report Type: 
  Country: US (occurrence: US)
  Receive Date: 20120911
  Receipt Date: 20121009
  Transmission Date: 20130627
  Serious: Yes (Other)
  Sender: FDA-Public Use
  Company Number: US-UCBSA-065108

PATIENT
  Sex: Male

DRUGS (1)
  1. KEPPRA XR [Suspect]
     Indication: CONVULSION
     Dosage: STRENGH : 500 MG

REACTIONS (2)
  - Ankle fracture [Unknown]
  - Fall [Unknown]
